FAERS Safety Report 9322038 (Version 1)
Quarter: 2013Q2

REPORT INFORMATION
  Report Type: Spontaneous
  Country: BR (occurrence: None)
  Receive Date: 20130529
  Receipt Date: 20130529
  Transmission Date: 20140414
  Serious: Yes (Other)
  Sender: FDA-Public Use
  Company Number: BR-1198361

PATIENT
  Age: 56 Year
  Sex: Female

DRUGS (5)
  1. TRAVATAN 0.004 % OPHTHALMIC SOLUTION (TRAVATAN 0.004%) [Suspect]
     Route: 047
  2. TIMOLOL MALEATE [Suspect]
     Route: 047
  3. RANITIDINA [Concomitant]
  4. BUSCOPAN [Concomitant]
  5. TRUSOPT [Concomitant]

REACTIONS (12)
  - Arthritis [None]
  - Exostosis [None]
  - Bladder prolapse [None]
  - Hormone level abnormal [None]
  - Lordosis [None]
  - Blindness [None]
  - Osteoarthritis [None]
  - Osteoporosis [None]
  - Hysterectomy [None]
  - Abdominal pain [None]
  - Spinal disorder [None]
  - Poor peripheral circulation [None]
